FAERS Safety Report 13571935 (Version 1)
Quarter: 2017Q2

REPORT INFORMATION
  Report Type: Spontaneous
  Country: BR (occurrence: BR)
  Receive Date: 20170523
  Receipt Date: 20170523
  Transmission Date: 20170830
  Serious: Yes (Other)
  Sender: FDA-Public Use
  Company Number: BR-ABBVIE-17K-020-1982992-00

PATIENT
  Sex: Female

DRUGS (2)
  1. HUMIRA [Suspect]
     Active Substance: ADALIMUMAB
     Indication: CROHN^S DISEASE
     Route: 058
  2. AZATHIOPRINE. [Concomitant]
     Active Substance: AZATHIOPRINE
     Indication: CROHN^S DISEASE
     Dates: start: 201705

REACTIONS (5)
  - Crohn^s disease [Unknown]
  - Anorectal disorder [Unknown]
  - Abdominal distension [Unknown]
  - Flatulence [Unknown]
  - Proctalgia [Unknown]

NARRATIVE: CASE EVENT DATE: 2017
